FAERS Safety Report 7641280-9 (Version None)
Quarter: 2011Q3

REPORT INFORMATION
  Report Type: 
  Country: None (occurrence: None)
  Receive Date: 20110728
  Receipt Date: 20110718
  Transmission Date: 20111222
  Serious: Yes (Hospitalization)
  Sender: FDA-Public Use
  Company Number: US-ASTRAZENECA-2011SE43331

PATIENT
  Age: 62 Year
  Sex: Male
  Weight: 70.4 kg

DRUGS (10)
  1. VANDETANIB [Suspect]
     Indication: GLIOBLASTOMA
     Route: 048
     Dates: start: 20110525, end: 20110714
  2. ONDANSETRON HCL [Concomitant]
  3. COLACE [Concomitant]
  4. DEXAMETHASONE [Concomitant]
  5. RADIATION THERAPY [Suspect]
     Indication: GLIOBLASTOMA
     Dates: start: 20110531
  6. OMEPRAZOLE [Concomitant]
  7. BACTRIM DS [Concomitant]
  8. MIRALAX [Concomitant]
  9. TEMOZOLOMIDE [Suspect]
     Indication: GLIOBLASTOMA
     Route: 048
     Dates: start: 20110531, end: 20110714
  10. METHYLPHENIDATE HCL [Concomitant]

REACTIONS (1)
  - ASCITES [None]
